FAERS Safety Report 25292226 (Version 1)
Quarter: 2025Q2

REPORT INFORMATION
  Report Type: Spontaneous
  Country: US (occurrence: US)
  Receive Date: 20250510
  Receipt Date: 20250510
  Transmission Date: 20250716
  Serious: No
  Sender: SANOFI AVENTIS
  Company Number: US-SA-2025SA120643

PATIENT
  Age: 71 Year
  Sex: Male

DRUGS (1)
  1. DUPIXENT [Suspect]
     Active Substance: DUPILUMAB
     Indication: Chronic obstructive pulmonary disease
     Dosage: 300 MG, QOW
     Route: 058

REACTIONS (5)
  - Cough [Unknown]
  - Secretion discharge [Unknown]
  - Dyspnoea [Recovering/Resolving]
  - Therapeutic response decreased [Recovering/Resolving]
  - Injection site erythema [Recovered/Resolved]

NARRATIVE: CASE EVENT DATE: 20250101
